FAERS Safety Report 8467403-X (Version None)
Quarter: 2012Q2

REPORT INFORMATION
  Report Type: 
  Country: None (occurrence: None)
  Receive Date: 20120626
  Receipt Date: 20120621
  Transmission Date: 20120825
  Serious: Yes (Other)
  Sender: FDA-Public Use
  Company Number: PHHY2009JP29089

PATIENT
  Sex: Male

DRUGS (8)
  1. TASIGNA [Suspect]
     Indication: CHRONIC MYELOID LEUKAEMIA
     Dosage: 800 MG, DAILY
     Route: 048
     Dates: start: 20090522
  2. TASIGNA [Suspect]
     Dosage: 400 MG, DAILY
     Route: 048
     Dates: start: 20090727
  3. UNIPHYL LA [Concomitant]
     Dosage: 400 MG, UNK
     Route: 048
     Dates: start: 20070614
  4. DIART [Concomitant]
     Dosage: 30 MG, UNK
     Route: 048
     Dates: start: 20071006
  5. PREDNISOLONE [Concomitant]
     Dosage: 4 MG, UNK
     Route: 048
     Dates: start: 20070719
  6. ZYLORIC ^FRESENIUS^ [Concomitant]
     Dosage: 200 MG, UNK
     Route: 048
     Dates: start: 20080222
  7. TETRAMIDE [Concomitant]
     Dosage: 20 MG, UNK
     Route: 048
     Dates: start: 20090604
  8. TASIGNA [Suspect]
     Dosage: 200 MG, DAILY
     Route: 048
     Dates: start: 20091102, end: 20100314

REACTIONS (2)
  - STOMATITIS [None]
  - CONDITION AGGRAVATED [None]
